FAERS Safety Report 11296940 (Version 1)
Quarter: 2015Q3

REPORT INFORMATION
  Report Type: Spontaneous
  Country: US (occurrence: US)
  Receive Date: 20150722
  Receipt Date: 20150722
  Transmission Date: 20151125
  Serious: No
  Sender: FDA-Public Use
  Company Number: US-ELI_LILLY_AND_COMPANY-US201011002219

PATIENT
  Sex: Male

DRUGS (3)
  1. ASPIRIN. [Concomitant]
     Active Substance: ASPIRIN
     Dosage: 81 MG, UNKNOWN
  2. COREG [Concomitant]
     Active Substance: CARVEDILOL
     Dosage: 3.125 MG, 2/D
  3. EFFIENT [Suspect]
     Active Substance: PRASUGREL HYDROCHLORIDE
     Indication: MYOCARDIAL INFARCTION
     Dosage: 10 MG, UNKNOWN
     Dates: start: 20100924, end: 20101105

REACTIONS (6)
  - Influenza like illness [Unknown]
  - Feeling jittery [Unknown]
  - Dizziness [Unknown]
  - Cold sweat [Unknown]
  - Hyperhidrosis [Unknown]
  - Pallor [Unknown]
